FAERS Safety Report 13258023 (Version 2)
Quarter: 2017Q1

REPORT INFORMATION
  Report Type: Report from Study
  Country: ES (occurrence: ES)
  Receive Date: 20170221
  Receipt Date: 20170307
  Transmission Date: 20170428
  Serious: Yes (Hospitalization)
  Sender: FDA-Public Use
  Company Number: ES-PROMETHEUS LABORATORIES-2017PL000016

PATIENT
  Age: 2 Year
  Sex: Female
  Weight: 14.6 kg

DRUGS (4)
  1. UNITUXIN [Suspect]
     Active Substance: DINUTUXIMAB
     Dosage: UNK UNKNOWN, UNK
     Route: 042
     Dates: start: 20161226
  2. UNITUXIN [Suspect]
     Active Substance: DINUTUXIMAB
     Indication: NEUROBLASTOMA
     Dosage: 41.16 MG, UNK
     Route: 042
     Dates: start: 20170123, end: 20170126
  3. PROLEUKIN [Suspect]
     Active Substance: ALDESLEUKIN
     Dosage: 7.2 MILLION IU, UNK
     Route: 065
     Dates: start: 20170116, end: 20170119
  4. PROLEUKIN [Suspect]
     Active Substance: ALDESLEUKIN
     Indication: NEUROBLASTOMA
     Dosage: 9.45 MILLION IU, UNK
     Route: 065
     Dates: start: 20170123, end: 20170126

REACTIONS (1)
  - Myelitis [Recovering/Resolving]

NARRATIVE: CASE EVENT DATE: 20170128
